FAERS Safety Report 10551946 (Version 1)
Quarter: 2014Q4

REPORT INFORMATION
  Report Type: Spontaneous
  Country: BR (occurrence: BR)
  Receive Date: 20141029
  Receipt Date: 20141029
  Transmission Date: 20150529
  Serious: Yes (Other)
  Sender: FDA-Public Use
  Company Number: BR-PFIZER INC-2014293192

PATIENT
  Age: 55 Year
  Sex: Female
  Weight: 62 kg

DRUGS (1)
  1. CARDURAN XL [Suspect]
     Active Substance: DOXAZOSIN MESYLATE
     Indication: MICTURITION DISORDER
     Dosage: 4 MG (1 TABLET) A DAY
     Route: 048
     Dates: start: 201402, end: 20141020

REACTIONS (2)
  - Off label use [Unknown]
  - Urinary retention [Unknown]

NARRATIVE: CASE EVENT DATE: 20141018
